FAERS Safety Report 8310530-8 (Version None)
Quarter: 2012Q2

REPORT INFORMATION
  Report Type: 
  Country: None (occurrence: None)
  Receive Date: 20120425
  Receipt Date: 20120423
  Transmission Date: 20120825
  Serious: Yes (Other)
  Sender: FDA-Public Use
  Company Number: DE-ROCHE-1048678

PATIENT
  Sex: Male

DRUGS (2)
  1. MIRCERA [Suspect]
     Indication: RENAL FAILURE CHRONIC
  2. HEPARIN [Concomitant]
     Dates: start: 20081104

REACTIONS (2)
  - FEMORAL NECK FRACTURE [None]
  - GASTROINTESTINAL HAEMORRHAGE [None]
